FAERS Safety Report 6206460-8 (Version None)
Quarter: 2009Q2

REPORT INFORMATION
  Report Type: 
  Country: None (occurrence: None)
  Receive Date: 20090528
  Receipt Date: 20090526
  Transmission Date: 20091009
  Serious: Yes (Hospitalization)
  Sender: FDA-Public Use
  Company Number: US-ASTRAZENECA-2009UW13285

PATIENT
  Age: 68 Year
  Sex: Male

DRUGS (1)
  1. CRESTOR [Suspect]
     Route: 048

REACTIONS (4)
  - ENDOCARDITIS [None]
  - HYPERKALAEMIA [None]
  - RENAL FAILURE [None]
  - RHABDOMYOLYSIS [None]
